FAERS Safety Report 8137386-0 (Version None)
Quarter: 2012Q1

REPORT INFORMATION
  Report Type: 
  Country: None (occurrence: None)
  Receive Date: 20120103
  Receipt Date: 20111005
  Transmission Date: 20120608
  Serious: No
  Sender: FDA-Public Use
  Company Number: AE-2011-001339

PATIENT
  Sex: Male
  Weight: 108.4097 kg

DRUGS (3)
  1. INCIVEK [Suspect]
     Dosage: (3 IN 1 D)
     Dates: start: 20110823
  2. RIBAVIRIN [Concomitant]
  3. PEGINTERFERON (PEG-INTERFERON ALFA-2A) [Concomitant]

REACTIONS (2)
  - RECTAL HAEMORRHAGE [None]
  - ANORECTAL DISCOMFORT [None]
